FAERS Safety Report 5374837-9 (Version None)
Quarter: 2007Q2

REPORT INFORMATION
  Report Type: 
  Country: None (occurrence: None)
  Receive Date: 20070629
  Receipt Date: 20070620
  Transmission Date: 20071010
  Serious: Yes (Life-Threatening, Hospitalization)
  Sender: FDA-Public Use
  Company Number: B0453410A

PATIENT
  Sex: Male
  Weight: 2.8 kg

DRUGS (4)
  1. COMBIVIR [Suspect]
     Indication: ANTIVIRAL PROPHYLAXIS
     Dates: start: 20050217, end: 20050406
  2. RETROVIR [Suspect]
     Indication: ANTIVIRAL PROPHYLAXIS
     Dosage: 1.1ML TWICE PER DAY
     Route: 048
     Dates: start: 20050406, end: 20050517
  3. RETROVIR [Concomitant]
     Dates: start: 20050406, end: 20050406
  4. KALETRA [Concomitant]
     Indication: ANTIVIRAL PROPHYLAXIS
     Dates: start: 20050217, end: 20050406

REACTIONS (3)
  - ANAEMIA [None]
  - DRUG EXPOSURE DURING PREGNANCY [None]
  - NEUTROPENIA [None]
